FAERS Safety Report 8512912-8 (Version None)
Quarter: 2012Q3

REPORT INFORMATION
  Report Type: 
  Country: None (occurrence: None)
  Receive Date: 20120716
  Receipt Date: 20120712
  Transmission Date: 20120928
  Serious: Yes (Hospitalization)
  Sender: FDA-Public Use
  Company Number: PHHO2012SE009233

PATIENT
  Sex: Male
  Weight: 88 kg

DRUGS (2)
  1. SORAFENIB [Suspect]
     Indication: METASTATIC RENAL CELL CARCINOMA
     Dosage: 400 MG, UNK
     Route: 048
     Dates: start: 20120102, end: 20120619
  2. PREDNISOLONE [Suspect]
     Indication: MOOD ALTERED
     Dosage: 20 MG, UNK
     Dates: start: 20110712

REACTIONS (1)
  - PNEUMOPERITONEUM [None]
